FAERS Safety Report 12579391 (Version 1)
Quarter: 2016Q3

REPORT INFORMATION
  Report Type: Spontaneous
  Country: US (occurrence: US)
  Receive Date: 20160721
  Receipt Date: 20160721
  Transmission Date: 20161109
  Serious: No
  Sender: FDA-Public Use
  Company Number: US-GLAXOSMITHKLINE-US2016099044

PATIENT
  Age: 77 Year
  Sex: Male

DRUGS (4)
  1. INCRUSE ELLIPTA [Suspect]
     Active Substance: UMECLIDINIUM BROMIDE
     Indication: CHRONIC OBSTRUCTIVE PULMONARY DISEASE
     Dosage: 1 PUFF(S), QD
     Route: 055
     Dates: start: 201607
  2. BUDESONIDE NEBULIZER [Concomitant]
     Active Substance: BUDESONIDE
  3. BROVANA [Concomitant]
     Active Substance: ARFORMOTEROL TARTRATE
  4. MUCINEX [Concomitant]
     Active Substance: GUAIFENESIN

REACTIONS (5)
  - Lower respiratory tract congestion [Recovering/Resolving]
  - Drug ineffective [Recovering/Resolving]
  - Chest discomfort [Recovering/Resolving]
  - Cough [Recovering/Resolving]
  - Productive cough [Recovering/Resolving]

NARRATIVE: CASE EVENT DATE: 201607
